FAERS Safety Report 13649721 (Version 1)
Quarter: 2017Q2

REPORT INFORMATION
  Report Type: Report from Study
  Country: FI (occurrence: FI)
  Receive Date: 20170614
  Receipt Date: 20170614
  Transmission Date: 20170830
  Serious: Yes (Life-Threatening, Hospitalization, Disabling)
  Sender: FDA-Public Use
  Company Number: FI-ROCHE-1949021

PATIENT
  Sex: Male

DRUGS (3)
  1. CAPECITABINE. [Suspect]
     Active Substance: CAPECITABINE
     Indication: COLORECTAL CANCER
     Dosage: 1000 MG/M2. IN 14 DAYS CYCLES.
     Route: 048
     Dates: start: 20141020, end: 20150224
  2. BEVACIZUMAB [Suspect]
     Active Substance: BEVACIZUMAB
     Indication: COLORECTAL CANCER
     Dosage: 7.5 MG/KG
     Route: 042
     Dates: start: 20141020, end: 20150210
  3. OXALIPLATIN. [Suspect]
     Active Substance: OXALIPLATIN
     Indication: COLORECTAL CANCER
     Dosage: 85MG/M2
     Route: 042
     Dates: start: 20141020, end: 20150303

REACTIONS (1)
  - Mitral valve prolapse [Recovering/Resolving]
